FAERS Safety Report 5569235-9 (Version None)
Quarter: 2007Q4

REPORT INFORMATION
  Report Type: 
  Country: None (occurrence: None)
  Receive Date: 20071220
  Receipt Date: 20070918
  Transmission Date: 20080405
  Serious: No
  Sender: FDA-Public Use
  Company Number: A0682739A

PATIENT
  Age: 71 Year
  Sex: Male

DRUGS (8)
  1. AVODART [Suspect]
     Indication: BENIGN PROSTATIC HYPERPLASIA
     Dosage: .5MG PER DAY
     Route: 048
     Dates: start: 20061116, end: 20070914
  2. NEXIUM [Concomitant]
  3. ATENOLOL [Concomitant]
  4. OXYBUTYNIN CHLORIDE [Concomitant]
  5. NAPRELAN [Concomitant]
  6. ZYRTEC [Concomitant]
  7. LIPITOR [Concomitant]
  8. LYRICA [Concomitant]

REACTIONS (1)
  - BREAST TENDERNESS [None]
